FAERS Safety Report 19083259 (Version 4)
Quarter: 2021Q2

REPORT INFORMATION
  Report Type: Spontaneous
  Country: US (occurrence: US)
  Receive Date: 20210401
  Receipt Date: 20210429
  Transmission Date: 20210717
  Serious: Yes (Other)
  Sender: FDA-Public Use
  Company Number: US-DECIPHERA PHARMACEUTICALS LLC-2021US000233

PATIENT
  Sex: Male

DRUGS (1)
  1. QINLOCK [Suspect]
     Active Substance: RIPRETINIB
     Indication: GASTROINTESTINAL STROMAL TUMOUR
     Dosage: 150 MILLIGRAM, QD
     Route: 048

REACTIONS (7)
  - Cardiac disorder [Unknown]
  - Neoplasm progression [Unknown]
  - Renal failure [Unknown]
  - Thrombosis [Unknown]
  - Pleural effusion [Recovering/Resolving]
  - Hypertension [Unknown]
  - Drug intolerance [Unknown]
